FAERS Safety Report 15187297 (Version 1)
Quarter: 2018Q3

REPORT INFORMATION
  Report Type: Report from Study
  Country: US (occurrence: US)
  Receive Date: 20180723
  Receipt Date: 20180723
  Transmission Date: 20181010
  Serious: No
  Sender: FDA-Public Use
  Company Number: US-EXELIXIS-CABO-18013862

PATIENT
  Age: 57 Year
  Sex: Male
  Weight: 71.2 kg

DRUGS (17)
  1. SENOKOT [Concomitant]
     Active Substance: SENNOSIDES
  2. LORATADINE. [Concomitant]
     Active Substance: LORATADINE
  3. PROCHLORPERAZINE MALEATE. [Concomitant]
     Active Substance: PROCHLORPERAZINE MALEATE
  4. ZOMETA [Suspect]
     Active Substance: ZOLEDRONIC ACID
     Indication: PRODUCT USED FOR UNKNOWN INDICATION
     Dosage: UNK
  5. CABOMETYX [Suspect]
     Active Substance: CABOZANTINIB S-MALATE
     Indication: PRODUCT USED FOR UNKNOWN INDICATION
     Dosage: 60 MG, QD
     Route: 048
     Dates: start: 201804, end: 201804
  6. CABOMETYX [Suspect]
     Active Substance: CABOZANTINIB S-MALATE
     Dosage: 40 MG, QD
     Route: 048
     Dates: start: 201804
  7. AMOXICILLIN AND CLAVULANATE POTASSIU. [Concomitant]
  8. MIRALAX [Concomitant]
     Active Substance: POLYETHYLENE GLYCOL 3350
  9. LORAZEPAM. [Concomitant]
     Active Substance: LORAZEPAM
  10. OXYCODONE HYDROCHLORIDE. [Concomitant]
     Active Substance: OXYCODONE HYDROCHLORIDE
  11. LEVOFLOXACIN. [Concomitant]
     Active Substance: LEVOFLOXACIN
  12. CYCLOBENZAPRINE HCL [Concomitant]
     Active Substance: CYCLOBENZAPRINE HYDROCHLORIDE
  13. CLARITIN [Concomitant]
     Active Substance: LORATADINE
  14. OXYCONTIN [Concomitant]
     Active Substance: OXYCODONE HYDROCHLORIDE
  15. AMITRIPTYLINE HCL [Concomitant]
     Active Substance: AMITRIPTYLINE
  16. MIRTAZAPINE. [Concomitant]
     Active Substance: MIRTAZAPINE
  17. ONDANSETRON ODT DRLA [Concomitant]
     Active Substance: ONDANSETRON

REACTIONS (1)
  - Adverse drug reaction [Recovered/Resolved]

NARRATIVE: CASE EVENT DATE: 201804
